FAERS Safety Report 6357206-4 (Version None)
Quarter: 2009Q3

REPORT INFORMATION
  Report Type: 
  Country: None (occurrence: None)
  Receive Date: 20090911
  Receipt Date: 20090902
  Transmission Date: 20100115
  Serious: Yes (Death, Congenital Anomaly)
  Sender: FDA-Public Use
  Company Number: GXKR2008US04744

PATIENT
  Sex: Female

DRUGS (7)
  1. MYCOPHENOLATE MOFETIL [Suspect]
     Dosage: MATERNAL DOSE: 1000 MG BID, TRANSPLACENTAL; MATERNAL DOSE: 500 MG BID, TRANSPLACENTAL
     Route: 064
  2. PREDNISONE [Suspect]
     Dosage: MATERNAL DOSE: 2.5 MG BID, TRANSPLACENTAL
     Route: 064
  3. ACYCLOVIR [Suspect]
     Dosage: MATERNAL DOSE: 400 MG BID, TRANSPLACENTAL
     Route: 064
  4. FOLIC ACID [Suspect]
     Dosage: , TRANSPLACENTAL
     Route: 064
  5. TACROLIMUS [Suspect]
     Dosage: MATERNAL DOSE: 5 MG BID, TRANSPLACENTAL
     Route: 064
  6. BACTRIM [Suspect]
     Dosage: MATERNAL DOSE: 800 MG BID, TRANSPLACENTAL
     Route: 064
  7. VITAMINS (NO INGREDIENTS/SUBSTANCES) UNKNOWN [Suspect]
     Dosage: , TRANSPLACENTAL
     Route: 064

REACTIONS (30)
  - CARDIOPULMONARY FAILURE [None]
  - CATARACT CONGENITAL [None]
  - CEREBRAL DISORDER [None]
  - CLEFT LIP AND PALATE [None]
  - CONGENITAL MITRAL VALVE STENOSIS [None]
  - CORNEAL OPACITY CONGENITAL [None]
  - CORNEAL TRANSPLANT [None]
  - DOUBLE OUTLET RIGHT VENTRICLE [None]
  - EXTERNAL AUDITORY CANAL ATRESIA [None]
  - FEEDING DISORDER [None]
  - GASTROINTESTINAL DISORDER [None]
  - HEART DISEASE CONGENITAL [None]
  - HYPERTELORISM OF ORBIT [None]
  - INTESTINAL MALROTATION [None]
  - LIMB DEFORMITY [None]
  - MATERNAL DRUGS AFFECTING FOETUS [None]
  - MICROPHTHALMOS [None]
  - MICROTIA [None]
  - MULTIPLE CONGENITAL ABNORMALITIES [None]
  - NEONATAL DISORDER [None]
  - NEONATAL PNEUMONIA [None]
  - NEONATAL RESPIRATORY DISTRESS SYNDROME [None]
  - NUCLEAR MAGNETIC RESONANCE IMAGING BRAIN ABNORMAL [None]
  - PATENT DUCTUS ARTERIOSUS [None]
  - PULMONARY HYPERTENSIVE CRISIS [None]
  - PULMONARY VALVE STENOSIS CONGENITAL [None]
  - RESPIRATORY DISORDER NEONATAL [None]
  - RIB DEFORMITY [None]
  - SPINE MALFORMATION [None]
  - VENTRICULAR HYPOPLASIA [None]
